FAERS Safety Report 16048381 (Version 5)
Quarter: 2019Q3

REPORT INFORMATION
  Report Type: Spontaneous
  Country: US (occurrence: US)
  Receive Date: 20190307
  Receipt Date: 20190909
  Transmission Date: 20191004
  Serious: Yes (Death, Other)
  Sender: FDA-Public Use
  Company Number: US-ASTRAZENECA-2018SE99612

PATIENT
  Age: 767 Month
  Sex: Female

DRUGS (26)
  1. NOVOLOG [Concomitant]
     Active Substance: INSULIN ASPART
  2. GLUCAGON. [Concomitant]
     Active Substance: GLUCAGON
  3. PRILOSEC [Suspect]
     Active Substance: OMEPRAZOLE MAGNESIUM
     Indication: GASTROOESOPHAGEAL REFLUX DISEASE
     Route: 048
     Dates: start: 20070101, end: 20161101
  4. PRILOSEC [Suspect]
     Active Substance: OMEPRAZOLE MAGNESIUM
     Indication: GASTROOESOPHAGEAL REFLUX DISEASE
     Dosage: GENERIC-20MG TWICE DAILY
     Route: 065
     Dates: start: 20071114, end: 20160920
  5. CETRIZINE [Concomitant]
     Active Substance: CETIRIZINE HYDROCHLORIDE
  6. FUROSEMIDE. [Concomitant]
     Active Substance: FUROSEMIDE
  7. VITAMIN D [Concomitant]
     Active Substance: VITAMIN D NOS
  8. NEXIUM [Suspect]
     Active Substance: ESOMEPRAZOLE MAGNESIUM
     Indication: GASTROOESOPHAGEAL REFLUX DISEASE
     Route: 048
     Dates: start: 20070101, end: 20161101
  9. METHOCARBAMOL. [Concomitant]
     Active Substance: METHOCARBAMOL
  10. ASPIRIN. [Concomitant]
     Active Substance: ASPIRIN
  11. PRILOSEC [Suspect]
     Active Substance: OMEPRAZOLE MAGNESIUM
     Indication: GASTROOESOPHAGEAL REFLUX DISEASE
     Route: 048
     Dates: start: 20070101
  12. PANTOPRAZOLE [Suspect]
     Active Substance: PANTOPRAZOLE
     Indication: GASTROOESOPHAGEAL REFLUX DISEASE
     Route: 065
     Dates: start: 20130710, end: 20140212
  13. LACTULOSE. [Concomitant]
     Active Substance: LACTULOSE
  14. CINACALCET. [Concomitant]
     Active Substance: CINACALCET
  15. RANITIDINE. [Concomitant]
     Active Substance: RANITIDINE
  16. METOPROLOL. [Concomitant]
     Active Substance: METOPROLOL
  17. GABAPENTIN. [Concomitant]
     Active Substance: GABAPENTIN
  18. CALCIUM ACETATE. [Concomitant]
     Active Substance: CALCIUM ACETATE
  19. SIMVASTATIN. [Concomitant]
     Active Substance: SIMVASTATIN
  20. MORPHINE [Concomitant]
     Active Substance: MORPHINE
  21. CYMBALTA [Concomitant]
     Active Substance: DULOXETINE HYDROCHLORIDE
  22. PRILOSEC OTC [Suspect]
     Active Substance: OMEPRAZOLE MAGNESIUM
     Indication: GASTROOESOPHAGEAL REFLUX DISEASE
     Route: 048
     Dates: start: 20070101
  23. PRILOSEC OTC [Suspect]
     Active Substance: OMEPRAZOLE MAGNESIUM
     Indication: GASTROOESOPHAGEAL REFLUX DISEASE
     Route: 048
     Dates: start: 20070101, end: 20161101
  24. NEXIUM [Suspect]
     Active Substance: ESOMEPRAZOLE MAGNESIUM
     Indication: GASTROOESOPHAGEAL REFLUX DISEASE
     Route: 048
     Dates: start: 20070101
  25. OXYCODONE [Concomitant]
     Active Substance: OXYCODONE
  26. TRAMADOL. [Concomitant]
     Active Substance: TRAMADOL

REACTIONS (6)
  - Renal injury [Unknown]
  - Death [Fatal]
  - Acute kidney injury [Unknown]
  - Nephrogenic anaemia [Unknown]
  - Chronic kidney disease [Unknown]
  - End stage renal disease [Unknown]

NARRATIVE: CASE EVENT DATE: 201002
